FAERS Safety Report 13455420 (Version 1)
Quarter: 2017Q2

REPORT INFORMATION
  Report Type: Spontaneous
  Country: SG (occurrence: SG)
  Receive Date: 20170418
  Receipt Date: 20170418
  Transmission Date: 20170830
  Serious: Yes (Other)
  Sender: FDA-Public Use
  Company Number: SG-BAYER-2017-067531

PATIENT
  Age: 16 Year
  Sex: Male

DRUGS (2)
  1. WARFARIN [Concomitant]
     Active Substance: WARFARIN
     Indication: TAKAYASU^S ARTERITIS
     Dosage: UNK
  2. ACETYLSALICYLIC ACID({=100 MG) [Suspect]
     Active Substance: ASPIRIN
     Indication: TAKAYASU^S ARTERITIS
     Dosage: UNK

REACTIONS (6)
  - Takayasu^s arteritis [None]
  - Myocardial ischaemia [None]
  - Ventricular fibrillation [None]
  - Arteriospasm coronary [None]
  - Off label use [None]
  - Chest pain [None]
